FAERS Safety Report 9138731 (Version 1)
Quarter: 2013Q1

REPORT INFORMATION
  Report Type: Other
  Country: GB (occurrence: GB)
  Receive Date: 20130305
  Receipt Date: 20130305
  Transmission Date: 20140127
  Serious: Yes (Death)
  Sender: FDA-Public Use
  Company Number: GB-ENDO PHARMACEUTICALS INC.-PERC20100008

PATIENT
  Age: 26 Year
  Sex: Male

DRUGS (9)
  1. PERCOCET [Suspect]
     Indication: PRODUCT USED FOR UNKNOWN INDICATION
  2. ALCOHOL [Suspect]
     Indication: PRODUCT USED FOR UNKNOWN INDICATION
  3. COCAINE [Suspect]
     Indication: PRODUCT USED FOR UNKNOWN INDICATION
  4. BENZOYLECGONINE [Suspect]
     Indication: PRODUCT USED FOR UNKNOWN INDICATION
  5. ECGONINE [Suspect]
     Indication: PRODUCT USED FOR UNKNOWN INDICATION
  6. DIAZEPAM [Suspect]
     Indication: PRODUCT USED FOR UNKNOWN INDICATION
  7. DESMETHYLDIAZEPAM [Suspect]
     Indication: PRODUCT USED FOR UNKNOWN INDICATION
  8. PARACETAMOL [Concomitant]
     Indication: PRODUCT USED FOR UNKNOWN INDICATION
  9. CITALOPRAM [Concomitant]
     Indication: DEPRESSION

REACTIONS (4)
  - Toxicity to various agents [None]
  - Overdose [None]
  - Gait disturbance [None]
  - Respiratory arrest [None]
